FAERS Safety Report 13692915 (Version 1)
Quarter: 2017Q2

REPORT INFORMATION
  Report Type: Spontaneous
  Country: US (occurrence: US)
  Receive Date: 20170626
  Receipt Date: 20170626
  Transmission Date: 20170830
  Serious: No
  Sender: FDA-Public Use
  Company Number: None

PATIENT
  Sex: Female

DRUGS (1)
  1. ALKERAN [Suspect]
     Active Substance: MELPHALAN
     Indication: DRUG THERAPY
     Dosage: 2 MG DAILY FOR 14 DAYS ORAL
     Route: 048

REACTIONS (2)
  - Transient ischaemic attack [None]
  - Skin odour abnormal [None]
